FAERS Safety Report 5503599-7 (Version None)
Quarter: 2007Q4

REPORT INFORMATION
  Report Type: 
  Country: None (occurrence: None)
  Receive Date: 20071029
  Receipt Date: 20071012
  Transmission Date: 20080405
  Serious: Yes (Hospitalization)
  Sender: FDA-Public Use
  Company Number: DSA_30791_2007

PATIENT
  Sex: Female

DRUGS (10)
  1. MONO-TILDIEM (MONO-TILDIEM - DILTIAZEM HYDROCHLORIDE) 300 MG (NOT SPEC [Suspect]
     Indication: HYPERTENSION
     Dosage: 300 MG QD; ORAL
     Route: 048
     Dates: end: 20070530
  2. KENZEN (KENZEN - CANDESARTAN CILEXETIL) 16 MG [Suspect]
     Indication: HYPERTENSION
     Dosage: 16 MG QD; ORAL
     Route: 048
     Dates: end: 20070530
  3. LANTUS [Concomitant]
  4. DEPAKINE CHRONO [Concomitant]
  5. NITRODERM [Concomitant]
  6. KARDEGIC /00002703/ [Concomitant]
  7. CRESTOR [Concomitant]
  8. HEXAQUINE [Concomitant]
  9. STILNOX /00914901/ [Concomitant]
  10. ACETAMINOPHEN [Concomitant]

REACTIONS (6)
  - BLOOD PRESSURE DECREASED [None]
  - BRADYCARDIA [None]
  - CHEST PAIN [None]
  - MALAISE [None]
  - NORMOCHROMIC NORMOCYTIC ANAEMIA [None]
  - RENAL FAILURE [None]
